FAERS Safety Report 10911489 (Version 1)
Quarter: 2015Q1

REPORT INFORMATION
  Report Type: Spontaneous
  Country: US (occurrence: US)
  Receive Date: 20150313
  Receipt Date: 20150313
  Transmission Date: 20150721
  Serious: No
  Sender: FDA-Public Use
  Company Number: US-ASTRAZENECA-2015SE20532

PATIENT
  Age: 25324 Day
  Sex: Female
  Weight: 50.3 kg

DRUGS (5)
  1. INHALER [Concomitant]
     Active Substance: UNSPECIFIED INGREDIENT
  2. PREDNISONE. [Concomitant]
     Active Substance: PREDNISONE
  3. SYMBICORT [Suspect]
     Active Substance: BUDESONIDE\FORMOTEROL FUMARATE DIHYDRATE
     Indication: HYPERSENSITIVITY
     Dosage: 10.2GM 0370-20, 160 4.5 MCG, 2 PUFFS, TWO TIMES A DAY
     Route: 055
  4. ANTIBIOTICS [Concomitant]
     Active Substance: UNSPECIFIED INGREDIENT
  5. AMOXICILLIN. [Concomitant]
     Active Substance: AMOXICILLIN

REACTIONS (6)
  - Nasal congestion [Unknown]
  - Anosmia [Unknown]
  - Sinus disorder [Unknown]
  - Pain [Unknown]
  - Sinusitis [Unknown]
  - Off label use [Unknown]

NARRATIVE: CASE EVENT DATE: 201502
